FAERS Safety Report 22526946 (Version 1)
Quarter: 2023Q2

REPORT INFORMATION
  Report Type: Spontaneous
  Country: CN (occurrence: CN)
  Receive Date: 20230606
  Receipt Date: 20230606
  Transmission Date: 20230722
  Serious: Yes (Hospitalization)
  Sender: FDA-Public Use
  Company Number: CN-BAYER-2023A074721

PATIENT
  Age: 67 Year
  Sex: Female
  Weight: 52 kg

DRUGS (4)
  1. STIVARGA [Suspect]
     Active Substance: REGORAFENIB
     Indication: Lung neoplasm malignant
     Dosage: 160 MG, QD
     Route: 048
     Dates: start: 20230315, end: 20230331
  2. STIVARGA [Suspect]
     Active Substance: REGORAFENIB
     Indication: Metastases to liver
  3. PEMBROLIZUMAB [Suspect]
     Active Substance: PEMBROLIZUMAB
     Indication: Lung neoplasm malignant
     Dosage: 200 MG, QD, DISSOLVE IN 0.9% SODIUM CHLORIDE INJECTION 100ML
     Route: 041
     Dates: start: 20230315, end: 20230315
  4. PEMBROLIZUMAB [Suspect]
     Active Substance: PEMBROLIZUMAB
     Indication: Metastases to liver

REACTIONS (1)
  - Myelosuppression [Recovering/Resolving]

NARRATIVE: CASE EVENT DATE: 20230331
